FAERS Safety Report 7647213-3 (Version None)
Quarter: 2011Q3

REPORT INFORMATION
  Report Type: 
  Country: None (occurrence: None)
  Receive Date: 20110729
  Receipt Date: 20110729
  Transmission Date: 20111222
  Serious: Yes (Other)
  Sender: FDA-Public Use
  Company Number: None

PATIENT
  Age: 51 Year
  Sex: Female
  Weight: 54.5 kg

DRUGS (2)
  1. FLUDROCORTISONE ACETATE [Concomitant]
  2. OXYELITE PRO 1 CAPSULE USP LABS [Suspect]
     Indication: SUPPLEMENTATION THERAPY
     Dosage: 1 CAPSULE DAILY ORAL
     Route: 048
     Dates: start: 20110702, end: 20110707

REACTIONS (4)
  - DIARRHOEA [None]
  - HYPOTENSION [None]
  - TOXICITY TO VARIOUS AGENTS [None]
  - DIZZINESS POSTURAL [None]
